FAERS Safety Report 5715863-7 (Version None)
Quarter: 2008Q2

REPORT INFORMATION
  Report Type: 
  Country: None (occurrence: None)
  Receive Date: 20080424
  Receipt Date: 20080421
  Transmission Date: 20081010
  Serious: Yes (Life-Threatening, Hospitalization, Other)
  Sender: FDA-Public Use
  Company Number: AU-AVENTIS-200813368GDDC

PATIENT
  Age: 61 Year
  Sex: Male

DRUGS (6)
  1. LANTUS [Suspect]
     Route: 058
     Dates: start: 20080303
  2. APIDRA [Concomitant]
     Route: 058
  3. COVERSYL                           /00790701/ [Concomitant]
     Indication: HYPERTENSION
     Route: 048
     Dates: start: 20080101
  4. PLENDIL [Concomitant]
     Indication: HYPERTENSION
     Route: 048
     Dates: start: 20000101
  5. DIABEX [Concomitant]
     Indication: DIABETES MELLITUS
     Route: 048
     Dates: start: 20000101
  6. CRESTOR [Concomitant]
     Indication: HYPERLIPIDAEMIA
     Route: 048
     Dates: start: 20070101

REACTIONS (1)
  - MYOCARDIAL INFARCTION [None]
